FAERS Safety Report 25791845 (Version 1)
Quarter: 2025Q3

REPORT INFORMATION
  Report Type: Spontaneous
  Country: US (occurrence: None)
  Receive Date: 20250911
  Receipt Date: 20250911
  Transmission Date: 20251020
  Serious: Yes (Hospitalization)
  Sender: FDA-CTU
  Company Number: None

PATIENT
  Sex: Female

DRUGS (10)
  1. LENALIDOMIDE [Suspect]
     Active Substance: LENALIDOMIDE
     Indication: Plasma cell myeloma
     Dosage: FREQUENCY : DAILY;?
     Route: 048
     Dates: start: 20250719
  2. ACETAMINOPHEN [Concomitant]
     Active Substance: ACETAMINOPHEN
  3. ACETAMINOPHE [Concomitant]
  4. AFRIN ORIGIN SPR 0.0.5% [Concomitant]
  5. ALBUTEROL AER HFA [Concomitant]
  6. ALLEGRA-D [Concomitant]
     Active Substance: FEXOFENADINE HYDROCHLORIDE\PSEUDOEPHEDRINE HYDROCHLORIDE
  7. ASCORBIC ACD [Concomitant]
  8. ASPIRIN LOW EC [Concomitant]
  9. BENZONATATE [Concomitant]
     Active Substance: BENZONATATE
  10. BIOTIN [Concomitant]
     Active Substance: BIOTIN

REACTIONS (2)
  - Pneumonia [None]
  - Therapy interrupted [None]
